FAERS Safety Report 8244920-9 (Version None)
Quarter: 2012Q1

REPORT INFORMATION
  Report Type: 
  Country: None (occurrence: None)
  Receive Date: 20120329
  Receipt Date: 20111021
  Transmission Date: 20120608
  Serious: No
  Sender: FDA-Public Use
  Company Number: US-MYLANLABS-2011S1019179

PATIENT
  Sex: Female

DRUGS (4)
  1. DAIRY EASE [Concomitant]
  2. FENTANYL-100 [Suspect]
     Indication: FIBROMYALGIA
     Dosage: CHANGES PATCHES 48 HRS
     Route: 062
  3. FENTANYL-100 [Suspect]
     Indication: PAIN
     Dosage: CHANGES PATCHES 48 HRS
     Route: 062
  4. ANTACIDS [Concomitant]

REACTIONS (1)
  - APPLICATION SITE DERMATITIS [None]
